FAERS Safety Report 12831329 (Version 2)
Quarter: 2016Q4

REPORT INFORMATION
  Report Type: Report from Study
  Country: None (occurrence: SE)
  Receive Date: 20161008
  Receipt Date: 20161013
  Transmission Date: 20170207
  Serious: Yes (Hospitalization)
  Sender: FDA-Public Use
  Company Number: SE-ABBVIE-16K-150-1745880-00

PATIENT
  Age: 67 Year
  Sex: Male

DRUGS (8)
  1. METOPROPOL [Concomitant]
     Indication: CARDIAC DISORDER
     Dates: start: 201609
  2. CLOZAPINE (LEPONEX) [Concomitant]
     Indication: HALLUCINATION
  3. DUODOPA [Suspect]
     Active Substance: CARBIDOPA\LEVODOPA
     Indication: PARKINSON^S DISEASE
     Dosage: MD 3ML, CD): 5.8 ML/H, CD(NIGHT): 4 ML/H ED1.5 ML (24HR DUODOPA TREATMENT)
     Route: 050
  4. FOLIC ACID. [Concomitant]
     Active Substance: FOLIC ACID
     Indication: PRODUCT USED FOR UNKNOWN INDICATION
  5. VENLAFAXINE [Concomitant]
     Active Substance: VENLAFAXINE HYDROCHLORIDE
     Indication: PRODUCT USED FOR UNKNOWN INDICATION
     Dosage: 1TABLET IN THE MORNING, 1 TABLET IN THE EVENING
  6. CYANOCOBALAMIN (BEHEPAN) [Concomitant]
     Indication: PRODUCT USED FOR UNKNOWN INDICATION
  7. WARAN [Concomitant]
     Active Substance: WARFARIN SODIUM
     Indication: PRODUCT USED FOR UNKNOWN INDICATION
     Dates: start: 201609
  8. WARAN [Concomitant]
     Active Substance: WARFARIN SODIUM
     Dates: start: 201609

REACTIONS (16)
  - Drug ineffective [Unknown]
  - Chest pain [Recovered/Resolved]
  - Pyrexia [Unknown]
  - Inflammatory marker increased [Unknown]
  - Dyspnoea [Recovering/Resolving]
  - Syncope [Recovered/Resolved]
  - Nausea [Unknown]
  - Myocardial infarction [Unknown]
  - Incorrect route of drug administration [Unknown]
  - Pulmonary embolism [Unknown]
  - Constipation [Unknown]
  - Device issue [Not Recovered/Not Resolved]
  - Pyrexia [Recovered/Resolved]
  - Vomiting [Unknown]
  - Parkinson^s disease [Unknown]
  - Hallucination [Not Recovered/Not Resolved]

NARRATIVE: CASE EVENT DATE: 201609
